FAERS Safety Report 6071941-7 (Version None)
Quarter: 2009Q1

REPORT INFORMATION
  Report Type: 
  Country: None (occurrence: None)
  Receive Date: 20090205
  Receipt Date: 20090205
  Transmission Date: 20090719
  Serious: Yes (Other)
  Sender: FDA-Public Use
  Company Number: None

PATIENT
  Age: 57 Year
  Sex: Male
  Weight: 70.3075 kg

DRUGS (1)
  1. LEVAQUIN [Suspect]
     Indication: COLLAPSE OF LUNG
     Dosage: 500MG 1 PER DAY PO 4 DAYS - HOSPITAL
     Route: 048
     Dates: start: 20080412, end: 20080415

REACTIONS (6)
  - ARTHROPATHY [None]
  - MUSCLE SPASMS [None]
  - OEDEMA PERIPHERAL [None]
  - RASH ERYTHEMATOUS [None]
  - SYNOVIAL CYST [None]
  - TENDONITIS [None]
